FAERS Safety Report 9094319 (Version 1)
Quarter: 2013Q1

REPORT INFORMATION
  Report Type: Spontaneous
  Country: US (occurrence: None)
  Receive Date: 20130214
  Receipt Date: 20130214
  Transmission Date: 20140127
  Serious: Yes (Other)
  Sender: FDA-Public Use
  Company Number: None

PATIENT
  Age: 52 Year
  Sex: Female

DRUGS (2)
  1. AFINITOR [Suspect]
     Route: 048
     Dates: start: 20120416
  2. AFINITOR [Suspect]
     Route: 048
     Dates: start: 20120416

REACTIONS (2)
  - Nasopharyngitis [None]
  - Wheezing [None]
